FAERS Safety Report 9055338 (Version 4)
Quarter: 2013Q1

REPORT INFORMATION
  Report Type: Report from Study
  Country: CZ (occurrence: CZ)
  Receive Date: 20130131
  Receipt Date: 20130215
  Transmission Date: 20140127
  Serious: Yes (Death, Life-Threatening, Hospitalization)
  Sender: FDA-Public Use
  Company Number: CZ-EISAI INC-E7389-01651-CLI-CZ

PATIENT
  Age: 62 None
  Sex: Male
  Weight: 72 kg

DRUGS (20)
  1. E7389 (BOLD) [Suspect]
     Indication: NON-SMALL CELL LUNG CANCER
     Route: 041
     Dates: start: 20111110, end: 20111110
  2. E7389 (BOLD) [Suspect]
     Route: 041
     Dates: start: 20111020, end: 20111020
  3. PEMETREXED [Suspect]
     Indication: NON-SMALL CELL LUNG CANCER
     Route: 041
     Dates: start: 20111110, end: 20111110
  4. PEMETREXED [Suspect]
     Route: 041
     Dates: start: 20111020, end: 20111020
  5. BETAXOLOL [Concomitant]
     Indication: HYPERTENSION
     Route: 048
     Dates: start: 2010
  6. ACIDUM ACETYLSALICYLICUM [Concomitant]
     Indication: CARDIOVASCULAR EVENT PROPHYLAXIS
     Route: 048
     Dates: start: 2010
  7. NATRII IBANDRONAS [Concomitant]
     Indication: CANCER PAIN
     Route: 048
     Dates: start: 20111019
  8. PARACETAMOL+CODEIN [Concomitant]
     Indication: CANCER PAIN
     Route: 048
     Dates: start: 20111020
  9. TRAMADOL [Concomitant]
     Indication: CANCER PAIN
     Route: 048
     Dates: start: 20111020
  10. SEFOTAK [Concomitant]
     Indication: FEBRILE NEUTROPENIA
     Route: 041
     Dates: start: 20111028, end: 20111103
  11. FIGRASTIM [Concomitant]
     Indication: FEBRILE NEUTROPENIA
     Route: 058
     Dates: start: 20111029, end: 20111031
  12. GRANISETRON [Concomitant]
     Indication: FEBRILE NEUTROPENIA
     Route: 040
     Dates: start: 20111029, end: 20111029
  13. METAMIZOLUM [Concomitant]
     Indication: FEBRILE NEUTROPENIA
     Route: 041
     Dates: start: 20111029, end: 20111031
  14. OXYCODON [Concomitant]
     Indication: CANCER PAIN
     Route: 048
     Dates: start: 20111101, end: 20111103
  15. HYDROMORFON [Concomitant]
     Indication: CANCER PAIN
     Route: 048
     Dates: start: 20111103
  16. PEGFILGRASTIM [Concomitant]
     Indication: FEBRILE NEUTROPENIA
     Route: 058
     Dates: start: 20111110, end: 20111110
  17. CEFUROXIM [Concomitant]
     Indication: FEBRILE NEUTROPENIA
     Route: 048
     Dates: start: 20111103
  18. IBUPROFEN [Concomitant]
     Indication: PAIN
     Route: 048
     Dates: start: 20111030, end: 20111103
  19. THIETHYLPERAZIN [Concomitant]
     Indication: FEBRILE NEUTROPENIA
     Route: 041
     Dates: start: 20111029, end: 20111030
  20. THIETHYLPERAZIN [Concomitant]
     Route: 048
     Dates: start: 20111031, end: 20111103

REACTIONS (3)
  - Diarrhoea [Recovering/Resolving]
  - Febrile neutropenia [Recovered/Resolved]
  - Malignant neoplasm progression [Fatal]
